FAERS Safety Report 13790768 (Version 2)
Quarter: 2018Q2

REPORT INFORMATION
  Report Type: Spontaneous
  Country: US (occurrence: US)
  Receive Date: 20170725
  Receipt Date: 20180419
  Transmission Date: 20180711
  Serious: No
  Sender: FDA-Public Use
  Company Number: US-GALDERMA-US17003884

PATIENT
  Sex: Female

DRUGS (2)
  1. CLINIQUE SKIN CARE [Concomitant]
     Indication: PRODUCT USED FOR UNKNOWN INDICATION
     Route: 061
  2. DIFFERIN GEL [Suspect]
     Active Substance: ADAPALENE
     Indication: ACNE
     Dosage: 0.1%
     Route: 061
     Dates: start: 201703

REACTIONS (3)
  - Erythema [Recovered/Resolved]
  - Skin irritation [Recovered/Resolved]
  - Skin sensitisation [Recovered/Resolved]

NARRATIVE: CASE EVENT DATE: 2017
